FAERS Safety Report 7816951-1 (Version None)
Quarter: 2011Q4

REPORT INFORMATION
  Report Type: 
  Country: None (occurrence: None)
  Receive Date: 20111017
  Receipt Date: 20111003
  Transmission Date: 20120403
  Serious: No
  Sender: FDA-Public Use
  Company Number: US-B.I. PHARMACEUTICALS,INC./RIDGEFIELD-2011-BP-22748BP

PATIENT
  Age: 45 Year
  Sex: Female

DRUGS (4)
  1. LEVOTHYROXINE SODIUM [Concomitant]
     Dates: start: 20090101
  2. VIRAMUNE [Suspect]
     Indication: HIV INFECTION
     Dosage: 400 MG
     Route: 048
     Dates: start: 20110505
  3. TRUVADA [Concomitant]
     Route: 048
     Dates: start: 20090101
  4. ASPIRIN [Concomitant]
     Dates: start: 20090101

REACTIONS (2)
  - VIRAL LOAD INCREASED [None]
  - MEDICATION RESIDUE [None]
